FAERS Safety Report 19599873 (Version 4)
Quarter: 2021Q3

REPORT INFORMATION
  Report Type: Report from Study
  Country: US (occurrence: US)
  Receive Date: 20210722
  Receipt Date: 20210929
  Transmission Date: 20211014
  Serious: Yes (Other)
  Sender: FDA-Public Use
  Company Number: NVSC2021US156676

PATIENT
  Age: 2 Year
  Sex: Male
  Weight: 13.1 kg

DRUGS (4)
  1. GSK1120212 [Suspect]
     Active Substance: TRAMETINIB
     Indication: NEUROFIBROMA
     Dosage: 8.5 ML (0.05 MG/ML ORAL SUSPENSION)
     Route: 048
     Dates: start: 20210528, end: 20210625
  2. GSK1120212 [Suspect]
     Active Substance: TRAMETINIB
     Dosage: 8.5 ML (0.05 MG/ML ORAL SUSPENSION)
     Route: 048
     Dates: start: 20210626, end: 20210722
  3. GSK1120212 [Suspect]
     Active Substance: TRAMETINIB
     Dosage: 8.5 ML (0.05 MG/ML ORAL SUSPENSION)
     Route: 048
     Dates: start: 20210723, end: 20210819
  4. GSK1120212 [Suspect]
     Active Substance: TRAMETINIB
     Dosage: 8.6 ML (0.05 MG/ML ORAL SUSPENSION)
     Route: 048
     Dates: start: 20210820

REACTIONS (18)
  - Blood creatine phosphokinase increased [Not Recovered/Not Resolved]
  - Diarrhoea [Recovered/Resolved]
  - Rhinorrhoea [Recovered/Resolved]
  - Hyperkalaemia [Not Recovered/Not Resolved]
  - Dry skin [Not Recovered/Not Resolved]
  - Alanine aminotransferase increased [Not Recovered/Not Resolved]
  - Vomiting [Recovered/Resolved]
  - Bronchitis [Recovered/Resolved]
  - Eructation [Recovered/Resolved]
  - Diarrhoea [Recovered/Resolved]
  - Cough [Recovered/Resolved]
  - Fatigue [Recovered/Resolved]
  - Diarrhoea [Recovered/Resolved]
  - Abdominal pain [Recovered/Resolved]
  - Cough [Recovered/Resolved]
  - Diarrhoea [Recovered/Resolved]
  - Diarrhoea [Recovered/Resolved]
  - Fall [Recovered/Resolved]

NARRATIVE: CASE EVENT DATE: 20210531
